APPROVED DRUG PRODUCT: HYDROCODONE BITARTRATE AND HOMATROPINE METHYLBROMIDE
Active Ingredient: HOMATROPINE METHYLBROMIDE; HYDROCODONE BITARTRATE
Strength: 1.5MG/5ML;5MG/5ML
Dosage Form/Route: SYRUP;ORAL
Application: A040285 | Product #001
Applicant: IVAX PHARMACEUTICALS INC SUB TEVA PHARMACEUTICALS USA
Approved: Jul 19, 1999 | RLD: No | RS: No | Type: DISCN